FAERS Safety Report 5083054-1 (Version None)
Quarter: 2006Q3

REPORT INFORMATION
  Report Type: 
  Country: None (occurrence: None)
  Receive Date: 20060814
  Receipt Date: 20060803
  Transmission Date: 20061208
  Serious: Yes (Hospitalization)
  Sender: FDA-Public Use
  Company Number: 2006S1000179

PATIENT
  Age: 54 Year
  Sex: Female

DRUGS (2)
  1. ACITRETIN [Suspect]
     Indication: PITYRIASIS RUBRA PILARIS
     Dosage: PO
     Route: 048
  2. ANTIHYPERTENSIVES [Concomitant]

REACTIONS (3)
  - FALL [None]
  - PRURITUS [None]
  - SKIN EXFOLIATION [None]
